FAERS Safety Report 8493015-8 (Version None)
Quarter: 2012Q3

REPORT INFORMATION
  Report Type: 
  Country: None (occurrence: None)
  Receive Date: 20120706
  Receipt Date: 20120627
  Transmission Date: 20120928
  Serious: Yes (Hospitalization, Other)
  Sender: FDA-Public Use
  Company Number: US-ASTRAZENECA-2012SE20843

PATIENT
  Age: 59 Year
  Sex: Male

DRUGS (2)
  1. NEXIUM [Suspect]
     Indication: GASTROINTESTINAL INFECTION
     Route: 048
  2. NEXIUM [Suspect]
     Indication: ULCER HAEMORRHAGE
     Route: 048

REACTIONS (8)
  - NEUROPATHY PERIPHERAL [None]
  - DIABETES MELLITUS [None]
  - ENTERITIS INFECTIOUS [None]
  - RENAL FAILURE [None]
  - PNEUMONIA [None]
  - CEREBROVASCULAR ACCIDENT [None]
  - ABDOMINAL DISCOMFORT [None]
  - OFF LABEL USE [None]
